FAERS Safety Report 6347387-0 (Version None)
Quarter: 2009Q3

REPORT INFORMATION
  Report Type: 
  Country: None (occurrence: None)
  Receive Date: 20090910
  Receipt Date: 20090810
  Transmission Date: 20100115
  Serious: No
  Sender: FDA-Public Use
  Company Number: US-BAYER-200930203NA

PATIENT
  Age: 59 Year
  Sex: Female
  Weight: 61 kg

DRUGS (1)
  1. ULTRAVIST PHARMACY BULK PACKAGE 240 [Suspect]
     Indication: HAEMATURIA
     Dosage: TOTAL DAILY DOSE: 194 ML  UNIT DOSE: 200 ML
     Route: 042
     Dates: start: 20090810, end: 20090810

REACTIONS (1)
  - SNEEZING [None]
